FAERS Safety Report 13264194 (Version 13)
Quarter: 2020Q1

REPORT INFORMATION
  Report Type: Spontaneous
  Country: US (occurrence: US)
  Receive Date: 20170223
  Receipt Date: 20200213
  Transmission Date: 20200409
  Serious: Yes (Other)
  Sender: FDA-Public Use
  Company Number: US-PFIZER INC-2017075288

PATIENT
  Age: 72 Year
  Sex: Female
  Weight: 96 kg

DRUGS (10)
  1. TOVIAZ [Suspect]
     Active Substance: FESOTERODINE FUMARATE
     Indication: URINARY INCONTINENCE
     Dosage: UNK
  2. TOVIAZ [Suspect]
     Active Substance: FESOTERODINE FUMARATE
     Dosage: 12 MG, DAILY (4MG IN MORNING AND 8MG AT NIGHT)
  3. TOVIAZ [Suspect]
     Active Substance: FESOTERODINE FUMARATE
     Dosage: 4 MG, TWICE A DAY
  4. TOVIAZ [Suspect]
     Active Substance: FESOTERODINE FUMARATE
     Dosage: 4 MG, 2X/DAY(1 TABLET IN MORNING AND 1 AT NIGHT BY MOUTH)
     Route: 048
  5. TOVIAZ [Suspect]
     Active Substance: FESOTERODINE FUMARATE
     Dosage: 4 MG, TWICE A DAY
  6. TOVIAZ [Suspect]
     Active Substance: FESOTERODINE FUMARATE
     Dosage: 4 MG, ONCE A DAY (EVERY NIGHT, ONE PILL AT NIGHT)
  7. TOVIAZ [Suspect]
     Active Substance: FESOTERODINE FUMARATE
     Dosage: 4 MG, 2X/DAY (TAKE IT TWICE A DAY)
  8. TOVIAZ [Suspect]
     Active Substance: FESOTERODINE FUMARATE
     Dosage: 8 MG, ONCE A DAY AT BEDTIME
  9. TOVIAZ [Suspect]
     Active Substance: FESOTERODINE FUMARATE
     Dosage: 4 MG, ONCE DAILY (IN THE MORNING (AM))
  10. BOTOX [Concomitant]
     Active Substance: ONABOTULINUMTOXINA
     Indication: BOTULINUM TOXIN INJECTION
     Dosage: UNK
     Dates: start: 2014, end: 20191004

REACTIONS (10)
  - Intentional product use issue [Unknown]
  - Nausea [Unknown]
  - Malaise [Unknown]
  - Therapeutic product effect incomplete [Unknown]
  - Off label use [Unknown]
  - Prescribed overdose [Unknown]
  - Drug dependence [Unknown]
  - Middle insomnia [Not Recovered/Not Resolved]
  - Withdrawal syndrome [Unknown]
  - Pollakiuria [Unknown]
